FAERS Safety Report 9473318 (Version 1)
Quarter: 2013Q3

REPORT INFORMATION
  Report Type: Spontaneous
  Country: US (occurrence: US)
  Receive Date: 20130823
  Receipt Date: 20130823
  Transmission Date: 20140515
  Serious: No
  Sender: FDA-Public Use
  Company Number: US-BRISTOL-MYERS SQUIBB COMPANY-18886325

PATIENT
  Age: 65 Year
  Sex: Male
  Weight: 69.84 kg

DRUGS (5)
  1. SPRYCEL [Suspect]
     Indication: CHRONIC MYELOID LEUKAEMIA
     Dates: start: 2013
  2. PROTONIX [Concomitant]
  3. RELAFEN [Concomitant]
  4. GABAPENTIN [Concomitant]
  5. LISINOPRIL [Concomitant]

REACTIONS (3)
  - Fatigue [Unknown]
  - Dysphonia [Unknown]
  - Back pain [Unknown]
